FAERS Safety Report 20156584 (Version 1)
Quarter: 2021Q4

REPORT INFORMATION
  Report Type: Spontaneous
  Country: US (occurrence: US)
  Receive Date: 20211207
  Receipt Date: 20211207
  Transmission Date: 20220303
  Serious: No
  Sender: FDA-Public Use
  Company Number: US-TAKEDA-2021TUS076247

PATIENT
  Sex: Female
  Weight: 62.132 kg

DRUGS (6)
  1. VELCADE [Suspect]
     Active Substance: BORTEZOMIB
     Indication: Plasma cell myeloma
     Dosage: 3.5 MILLIGRAM
     Route: 058
  2. VELCADE [Suspect]
     Active Substance: BORTEZOMIB
     Dosage: 2.2 MILLIGRAM
     Route: 058
  3. DARZALEX [Concomitant]
     Active Substance: DARATUMUMAB
     Dosage: UNK
     Route: 065
  4. ACYCLOVIR [Concomitant]
     Active Substance: ACYCLOVIR
     Dosage: UNK
     Route: 065
  5. REVLIMID [Concomitant]
     Active Substance: LENALIDOMIDE
     Dosage: UNK
     Route: 065
  6. ARANESP [Concomitant]
     Active Substance: DARBEPOETIN ALFA
     Dosage: UNK
     Route: 065

REACTIONS (3)
  - No adverse event [Unknown]
  - Product dispensing error [Unknown]
  - Product dose omission issue [Unknown]
